FAERS Safety Report 10628773 (Version 1)
Quarter: 2014Q4

REPORT INFORMATION
  Report Type: Spontaneous
  Country: US (occurrence: US)
  Receive Date: 20141205
  Receipt Date: 20141205
  Transmission Date: 20150529
  Serious: No
  Sender: FDA-Public Use
  Company Number: US-BRISTOL-MYERS SQUIBB COMPANY-21302344

PATIENT
  Age: 88 Year
  Sex: Male
  Weight: 72.56 kg

DRUGS (1)
  1. COUMADIN [Suspect]
     Active Substance: WARFARIN SODIUM
     Indication: CEREBROVASCULAR ACCIDENT PROPHYLAXIS
     Dosage: 3 MG/DAY FOR 5 DAYS A WEEK. 4 MG/DAY FOR TWO DAYS A WEEK
     Route: 048

REACTIONS (1)
  - Pruritus [Unknown]
